FAERS Safety Report 20573478 (Version 1)
Quarter: 2022Q1

REPORT INFORMATION
  Report Type: Spontaneous
  Country: US (occurrence: None)
  Receive Date: 20220309
  Receipt Date: 20220309
  Transmission Date: 20220424
  Serious: Yes (Other)
  Sender: FDA-Public Use
  Company Number: None

PATIENT
  Age: 71 Year
  Sex: Female
  Weight: 72.57 kg

DRUGS (12)
  1. CIPROFLOXACIN HCL [Suspect]
     Active Substance: CIPROFLOXACIN HYDROCHLORIDE
     Indication: Urinary tract infection
     Dosage: 1 PILL TWICE     BY MOUTH ??1 DAY - QUIT IMMEDIATELY AFTER FIRST DAY ?
     Route: 048
     Dates: start: 20211218, end: 20211218
  2. DEVICE [Concomitant]
     Active Substance: DEVICE
  3. VALSARTAN [Concomitant]
     Active Substance: VALSARTAN
  4. ATORVASTATIN CALCIUM [Concomitant]
     Active Substance: ATORVASTATIN CALCIUM
  5. MULTI [Concomitant]
  6. VITAMIN D3 [Concomitant]
     Active Substance: CHOLECALCIFEROL
  7. C [Concomitant]
  8. OMEGAS CALCIUM [Concomitant]
  9. COENZYME Q10 [Concomitant]
     Active Substance: DIETARY SUPPLEMENT\UBIDECARENONE
  10. CRANBERRY [Concomitant]
     Active Substance: CRANBERRY
  11. LUTEIN ZEAXANTNIM [Concomitant]
  12. ST.. SOFTENER [Concomitant]

REACTIONS (3)
  - Tendon pain [None]
  - Musculoskeletal disorder [None]
  - Pain in extremity [None]

NARRATIVE: CASE EVENT DATE: 20211218
